FAERS Safety Report 21105257 (Version 2)
Quarter: 2025Q1

REPORT INFORMATION
  Report Type: Spontaneous
  Country: US (occurrence: US)
  Receive Date: 20220720
  Receipt Date: 20250131
  Transmission Date: 20250409
  Serious: No
  Sender: BRISTOL-MYERS SQUIBB COMPANY
  Company Number: US-BRISTOL-MYERS SQUIBB COMPANY-2022-067399

PATIENT

DRUGS (1)
  1. OZANIMOD [Suspect]
     Active Substance: OZANIMOD
     Indication: Multiple sclerosis
     Dosage: DOSE : 0.92 MG;     FREQ : ONCE DAILY
     Route: 048
     Dates: start: 2021

REACTIONS (2)
  - Lymphoedema [Recovered/Resolved]
  - Hypertension [Unknown]
